FAERS Safety Report 14053069 (Version 2)
Quarter: 2017Q4

REPORT INFORMATION
  Report Type: Spontaneous
  Country: US (occurrence: US)
  Receive Date: 20171005
  Receipt Date: 20171121
  Transmission Date: 20180321
  Serious: Yes (Hospitalization)
  Sender: FDA-Public Use
  Company Number: US-JNJFOC-20170924660

PATIENT
  Age: 46 Year
  Sex: Female

DRUGS (4)
  1. XARELTO [Suspect]
     Active Substance: RIVAROXABAN
     Indication: DEEP VEIN THROMBOSIS
     Dosage: 15 MG FOR 21 DAYS, 20 MG??THEREAFTER
     Route: 048
     Dates: start: 20150507, end: 20150525
  2. XARELTO [Suspect]
     Active Substance: RIVAROXABAN
     Indication: LIPOSUCTION
     Dosage: 15 MG FOR 21 DAYS, 20 MG??THEREAFTER
     Route: 048
     Dates: start: 20150507, end: 20150525
  3. XARELTO [Suspect]
     Active Substance: RIVAROXABAN
     Indication: DEEP VEIN THROMBOSIS
     Dosage: 15 MG FOR 21 DAYS, 20 MG??THEREAFTER
     Route: 048
  4. XARELTO [Suspect]
     Active Substance: RIVAROXABAN
     Indication: LIPOSUCTION
     Dosage: 15 MG FOR 21 DAYS, 20 MG??THEREAFTER
     Route: 048

REACTIONS (2)
  - Coagulopathy [Recovering/Resolving]
  - Vaginal haemorrhage [Recovering/Resolving]

NARRATIVE: CASE EVENT DATE: 20150507
